FAERS Safety Report 20557186 (Version 1)
Quarter: 2022Q1

REPORT INFORMATION
  Report Type: Spontaneous
  Country: GB (occurrence: GB)
  Receive Date: 20220307
  Receipt Date: 20220307
  Transmission Date: 20220424
  Serious: Yes (Other)
  Sender: FDA-Public Use
  Company Number: GB-SUN PHARMACEUTICAL INDUSTRIES LTD-2022R1-328237

PATIENT
  Age: 21 Year
  Sex: Female

DRUGS (5)
  1. CLINDAMYCIN [Suspect]
     Active Substance: CLINDAMYCIN
     Indication: Chlamydial infection
     Dosage: 600 MILLIGRAM, QID
     Route: 048
  2. ERYTHROMYCIN [Suspect]
     Active Substance: ERYTHROMYCIN
     Indication: Chlamydial infection
     Dosage: UNK
     Route: 065
  3. PENICILLIN [Suspect]
     Active Substance: PENICILLIN
     Indication: Product used for unknown indication
     Dosage: UNK
     Route: 065
  4. GENTAMICIN [Suspect]
     Active Substance: GENTAMICIN
     Indication: Gonorrhoea
     Dosage: 240 MILLIGRAM
     Route: 030
  5. RIFAMPIN [Suspect]
     Active Substance: RIFAMPIN
     Indication: Gonorrhoea
     Dosage: 600 MILLIGRAM, QD
     Route: 048

REACTIONS (4)
  - Hypersensitivity [Unknown]
  - Rash erythematous [Unknown]
  - Angioedema [Unknown]
  - Exposure during pregnancy [Unknown]
